FAERS Safety Report 15326772 (Version 2)
Quarter: 2018Q3

REPORT INFORMATION
  Report Type: Report from Study
  Country: SK (occurrence: SK)
  Receive Date: 20180828
  Receipt Date: 20180912
  Transmission Date: 20181010
  Serious: Yes (Life-Threatening, Other)
  Sender: FDA-Public Use
  Company Number: SK-AMGEN-SVKSP2018117616

PATIENT
  Age: 9 Year
  Sex: Female
  Weight: 30 kg

DRUGS (2)
  1. BLINATUMOMAB [Suspect]
     Active Substance: BLINATUMOMAB
     Dosage: 15 MCG/M2, (8?28 DAY) CONTIONUS INFUSION
     Route: 042
     Dates: end: 20180807
  2. BLINATUMOMAB [Suspect]
     Active Substance: BLINATUMOMAB
     Indication: ACUTE LYMPHOCYTIC LEUKAEMIA RECURRENT
     Dosage: 5 MCG/M2, (7 DAYS) CONTIONUS INFUSION
     Route: 042
     Dates: start: 20180711

REACTIONS (1)
  - Leukaemic infiltration extramedullary [Not Recovered/Not Resolved]

NARRATIVE: CASE EVENT DATE: 20180810
